FAERS Safety Report 5054574-0 (Version None)
Quarter: 2006Q2

REPORT INFORMATION
  Report Type: 
  Country: None (occurrence: None)
  Receive Date: 20060616
  Receipt Date: 20060302
  Transmission Date: 20061013
  Serious: No
  Sender: FDA-Public Use
  Company Number: 2006US000505

PATIENT
  Sex: Female

DRUGS (8)
  1. VESICARE [Suspect]
     Dosage: 5 MG, ORAL
     Route: 048
     Dates: start: 20060201
  2. RESTASIS [Concomitant]
  3. CLONAZEPAM [Concomitant]
  4. SYNTHROID [Concomitant]
  5. LEXAPRO [Concomitant]
  6. PREMARIL (ESTROGENS CONJUGATED) [Concomitant]
  7. FOSAMAX [Concomitant]
  8. CLIMARA PATCH (ESTRADIOL) [Concomitant]

REACTIONS (1)
  - MEMORY IMPAIRMENT [None]
